FAERS Safety Report 9982328 (Version 2)
Quarter: 2014Q1

REPORT INFORMATION
  Report Type: Spontaneous
  Country: US (occurrence: US)
  Receive Date: 20140307
  Receipt Date: 20140321
  Transmission Date: 20141002
  Serious: Yes (Other)
  Sender: FDA-Public Use
  Company Number: US-LUNDBECK-DKLU1097949

PATIENT
  Age: 29 Year
  Sex: Male

DRUGS (1)
  1. SABRIL (TABLET) [Suspect]
     Indication: COMPLEX PARTIAL SEIZURES
     Route: 048
     Dates: start: 20131210

REACTIONS (2)
  - Vision blurred [Not Recovered/Not Resolved]
  - Dry eye [Not Recovered/Not Resolved]
